FAERS Safety Report 23262261 (Version 1)
Quarter: 2023Q4

REPORT INFORMATION
  Report Type: Spontaneous
  Country: IT (occurrence: IT)
  Receive Date: 20231205
  Receipt Date: 20231205
  Transmission Date: 20240110
  Serious: Yes (Hospitalization)
  Sender: FDA-Public Use
  Company Number: None

PATIENT
  Age: 57 Year
  Sex: Male

DRUGS (2)
  1. OLANZAPINE [Suspect]
     Active Substance: OLANZAPINE
     Route: 048
     Dates: start: 20231113, end: 20231113
  2. QUETIAPINE [Suspect]
     Active Substance: QUETIAPINE
     Dosage: 10 CPR QUETIAPINE 25 MG, 2 CPR QUETIAPINE 200 MG
     Route: 048
     Dates: start: 20231113, end: 20231113

REACTIONS (3)
  - Photophobia [Recovering/Resolving]
  - Drug abuse [Unknown]
  - Miosis [Unknown]

NARRATIVE: CASE EVENT DATE: 20231113
